FAERS Safety Report 21034417 (Version 2)
Quarter: 2022Q3

REPORT INFORMATION
  Report Type: Spontaneous
  Country: US (occurrence: US)
  Receive Date: 20220701
  Receipt Date: 20220916
  Transmission Date: 20221027
  Serious: No
  Sender: FDA-Public Use
  Company Number: US-MYLANLABS-2022M1049315

PATIENT
  Age: 11 Year
  Sex: Male
  Weight: 47.63 kg

DRUGS (1)
  1. EPIPEN [Suspect]
     Active Substance: EPINEPHRINE
     Indication: Hypersensitivity
     Dosage: UNK
     Route: 065
     Dates: start: 20220627

REACTIONS (2)
  - Injury associated with device [Unknown]
  - Device failure [Unknown]

NARRATIVE: CASE EVENT DATE: 20220627
